FAERS Safety Report 6660712-6 (Version None)
Quarter: 2010Q1

REPORT INFORMATION
  Report Type: 
  Country: None (occurrence: None)
  Receive Date: 20100331
  Receipt Date: 20100322
  Transmission Date: 20100710
  Serious: Yes (Hospitalization)
  Sender: FDA-Public Use
  Company Number: US-JNJFOC-20100303920

PATIENT
  Sex: Male
  Weight: 15.3 kg

DRUGS (18)
  1. INFLIXIMAB [Suspect]
     Indication: CROHN'S DISEASE
     Route: 042
  2. INFLIXIMAB [Suspect]
     Route: 042
  3. INFLIXIMAB [Suspect]
     Route: 042
  4. TRILEPTAL [Concomitant]
  5. KEPPRA [Concomitant]
  6. CARAFATE [Concomitant]
  7. PREVACID [Concomitant]
  8. ALLEGRA [Concomitant]
  9. XOPENEX [Concomitant]
  10. PULMICORT [Concomitant]
  11. ACETAMINOPHEN [Concomitant]
  12. IBUPROFEN [Concomitant]
  13. DIPHENHYDRAMINE HYDROCHLORIDE [Concomitant]
  14. DIAZEPAM [Concomitant]
  15. CLONAZEPAM [Concomitant]
  16. DIASTASE [Concomitant]
  17. IMODIUM [Concomitant]
  18. ERYTHROMYCIN ETHYLSUCCINATE [Concomitant]

REACTIONS (1)
  - DEHYDRATION [None]
